FAERS Safety Report 13819217 (Version 1)
Quarter: 2017Q3

REPORT INFORMATION
  Report Type: Report from Study
  Country: US (occurrence: US)
  Receive Date: 20170731
  Receipt Date: 20170731
  Transmission Date: 20171127
  Serious: No
  Sender: FDA-Public Use
  Company Number: US-EXELIXIS-CABO-17008384

PATIENT
  Sex: Male

DRUGS (15)
  1. LIPITOR [Concomitant]
     Active Substance: ATORVASTATIN CALCIUM
  2. TOPROL XL [Concomitant]
     Active Substance: METOPROLOL SUCCINATE
  3. ASPIRIN. [Concomitant]
     Active Substance: ASPIRIN
  4. CABOMETYX [Suspect]
     Active Substance: CABOZANTINIB S-MALATE
     Indication: NEOPLASM MALIGNANT
     Dosage: 20 MG, QD, 1 WEEK ON, 1 WEEK OFF
     Route: 048
  5. RENVELA [Concomitant]
     Active Substance: SEVELAMER CARBONATE
  6. TYLENOL [Concomitant]
     Active Substance: ACETAMINOPHEN
  7. NORVASC [Concomitant]
     Active Substance: AMLODIPINE BESYLATE
  8. ROXICODONE [Concomitant]
     Active Substance: OXYCODONE HYDROCHLORIDE
  9. SYNTHROID [Concomitant]
     Active Substance: LEVOTHYROXINE SODIUM
  10. CABOMETYX [Suspect]
     Active Substance: CABOZANTINIB S-MALATE
     Indication: RENAL CANCER
     Dosage: 20 MG, QD
     Route: 048
     Dates: start: 20170202
  11. FLOMAX [Concomitant]
     Active Substance: TAMSULOSIN HYDROCHLORIDE
  12. ZANTAC [Concomitant]
     Active Substance: RANITIDINE HYDROCHLORIDE
  13. DELTASONE [Concomitant]
     Active Substance: PREDNISONE
  14. MACRODANTIN [Concomitant]
     Active Substance: NITROFURANTOIN
  15. OPDIVO [Concomitant]
     Active Substance: NIVOLUMAB

REACTIONS (4)
  - Diarrhoea [Unknown]
  - Somnolence [Unknown]
  - Blood test abnormal [Unknown]
  - Asthenia [Unknown]
